FAERS Safety Report 14125568 (Version 2)
Quarter: 2017Q4

REPORT INFORMATION
  Report Type: Spontaneous
  Country: US (occurrence: US)
  Receive Date: 20171025
  Receipt Date: 20171121
  Transmission Date: 20180321
  Serious: Yes (Hospitalization, Other)
  Sender: FDA-Public Use
  Company Number: US-JNJFOC-20171016140

PATIENT
  Age: 57 Year
  Sex: Female
  Weight: 90.72 kg

DRUGS (6)
  1. XARELTO [Suspect]
     Active Substance: RIVAROXABAN
     Indication: CEREBROVASCULAR ACCIDENT
     Route: 048
  2. ATENOLOL. [Concomitant]
     Active Substance: ATENOLOL
     Indication: HEART RATE ABNORMAL
     Route: 048
  3. XARELTO [Suspect]
     Active Substance: RIVAROXABAN
     Indication: CEREBROVASCULAR ACCIDENT
     Route: 048
     Dates: start: 2012, end: 2016
  4. XARELTO [Suspect]
     Active Substance: RIVAROXABAN
     Indication: ATRIAL FIBRILLATION
     Route: 048
     Dates: start: 2012, end: 2016
  5. PLAVIX [Concomitant]
     Active Substance: CLOPIDOGREL BISULFATE
     Indication: STENT PLACEMENT
     Route: 048
     Dates: start: 201701
  6. XARELTO [Suspect]
     Active Substance: RIVAROXABAN
     Indication: ATRIAL FIBRILLATION
     Route: 048

REACTIONS (9)
  - Sinusitis [Not Recovered/Not Resolved]
  - Paraesthesia [Not Recovered/Not Resolved]
  - Cerebrovascular accident [Recovered/Resolved]
  - Haematochezia [Recovered/Resolved]
  - Bronchitis [Not Recovered/Not Resolved]
  - Drug dose omission [Unknown]
  - Hypoaesthesia [Not Recovered/Not Resolved]
  - Abdominal pain [Recovered/Resolved]
  - Back pain [Not Recovered/Not Resolved]

NARRATIVE: CASE EVENT DATE: 2016
